FAERS Safety Report 18546347 (Version 2)
Quarter: 2020Q4

REPORT INFORMATION
  Report Type: Report from Study
  Country: US (occurrence: US)
  Receive Date: 20201125
  Receipt Date: 20201127
  Transmission Date: 20210114
  Serious: No
  Sender: FDA-Public Use
  Company Number: US-SA-2020SA336482

PATIENT

DRUGS (1)
  1. ALIROCUMAB [Suspect]
     Active Substance: ALIROCUMAB
     Indication: HYPERCHOLESTEROLAEMIA
     Dosage: 150 MG, QOW
     Route: 058
     Dates: start: 20201024

REACTIONS (7)
  - Feeling hot [Unknown]
  - Abdominal pain upper [Unknown]
  - Injection site bruising [Unknown]
  - Peripheral swelling [Unknown]
  - Pruritus [Unknown]
  - Injection site discolouration [Unknown]
  - Injection site induration [Unknown]
